FAERS Safety Report 8376965-2 (Version None)
Quarter: 2012Q2

REPORT INFORMATION
  Report Type: 
  Country: None (occurrence: None)
  Receive Date: 20120522
  Receipt Date: 20120511
  Transmission Date: 20120825
  Serious: No
  Sender: FDA-Public Use
  Company Number: US-ASTRAZENECA-2012SE30782

PATIENT
  Sex: Male

DRUGS (1)
  1. ANASTROZOLE [Suspect]
     Route: 048

REACTIONS (5)
  - AZOOSPERMIA [None]
  - SCROTAL VARICOSE VEINS [None]
  - OFF LABEL USE [None]
  - TESTICULAR ATROPHY [None]
  - GENITAL DISORDER MALE [None]
